FAERS Safety Report 17283488 (Version 1)
Quarter: 2020Q1

REPORT INFORMATION
  Report Type: Report from Study
  Country: US (occurrence: US)
  Receive Date: 20200117
  Receipt Date: 20200117
  Transmission Date: 20200409
  Serious: Yes (Death, Other)
  Sender: FDA-Public Use
  Company Number: US-ELI_LILLY_AND_COMPANY-US202001006177

PATIENT
  Age: 11 Year
  Sex: Male

DRUGS (3)
  1. TRAMETINIB [Concomitant]
     Active Substance: TRAMETINIB
     Indication: ANGIOSARCOMA
  2. OLARATUMAB [Suspect]
     Active Substance: OLARATUMAB
     Indication: ANGIOSARCOMA
     Dosage: UNK, UNKNOWN
     Route: 065
  3. DOXORUBICIN [Suspect]
     Active Substance: DOXORUBICIN
     Indication: ANGIOSARCOMA
     Dosage: UNK, UNKNOWN
     Route: 065

REACTIONS (3)
  - Respiratory failure [Fatal]
  - Malignant neoplasm progression [Unknown]
  - Pleural effusion [Unknown]
